FAERS Safety Report 17517178 (Version 1)
Quarter: 2020Q1

REPORT INFORMATION
  Report Type: Spontaneous
  Country: US (occurrence: US)
  Receive Date: 20200308
  Receipt Date: 20200308
  Transmission Date: 20200409
  Serious: Yes (Life-Threatening, Hospitalization)
  Sender: FDA-Public Use
  Company Number: None

PATIENT
  Age: 53 Year
  Sex: Female
  Weight: 60.75 kg

DRUGS (8)
  1. ALBUTEROL INHALER [Concomitant]
     Active Substance: ALBUTEROL
  2. TOPIRAMATE. [Suspect]
     Active Substance: TOPIRAMATE
     Indication: MIGRAINE
     Dosage: ?          QUANTITY:1 TABLET(S);?
     Route: 048
     Dates: start: 20200306, end: 20200306
  3. SONATA [Concomitant]
     Active Substance: ZALEPLON
  4. COQ10 [Concomitant]
     Active Substance: UBIDECARENONE
  5. EPIPEN [Concomitant]
     Active Substance: EPINEPHRINE
  6. MAGNESIUM [Concomitant]
     Active Substance: MAGNESIUM
  7. B2 [Concomitant]
  8. ADVIL [Concomitant]
     Active Substance: IBUPROFEN

REACTIONS (7)
  - Thirst [None]
  - Dysphagia [None]
  - Chills [None]
  - Hypersensitivity [None]
  - Oropharyngeal pain [None]
  - Swollen tongue [None]
  - Eye pain [None]

NARRATIVE: CASE EVENT DATE: 20200306
